FAERS Safety Report 6253002-7 (Version None)
Quarter: 2009Q2

REPORT INFORMATION
  Report Type: 
  Country: None (occurrence: None)
  Receive Date: 20090629
  Receipt Date: 20090624
  Transmission Date: 20091009
  Serious: Yes (Hospitalization)
  Sender: FDA-Public Use
  Company Number: SPV1-2009-00841

PATIENT
  Age: 8 Year
  Sex: Male
  Weight: 24 kg

DRUGS (2)
  1. VYVANSE [Suspect]
     Indication: ATTENTION DEFICIT/HYPERACTIVITY DISORDER
     Dosage: 20 MG, ORAL
     Route: 048
     Dates: start: 20090413, end: 20090417
  2. FIORICET [Suspect]
     Indication: MIGRAINE

REACTIONS (2)
  - ABDOMINAL PAIN UPPER [None]
  - STEVENS-JOHNSON SYNDROME [None]
